FAERS Safety Report 8860004 (Version 1)
Quarter: 2012Q4

REPORT INFORMATION
  Report Type: 
  Country: US (occurrence: US)
  Receive Date: 20121025
  Receipt Date: 20121025
  Transmission Date: 20130627
  Serious: Yes (Disabling, Other)
  Sender: FDA-Public Use
  Company Number: US-PFIZER INC-2012262480

PATIENT
  Sex: Female

DRUGS (1)
  1. TOVIAZ [Suspect]
     Dosage: UNK

REACTIONS (6)
  - Musculoskeletal disorder [Unknown]
  - Urinary retention [Unknown]
  - Gastric disorder [Unknown]
  - Nocturia [Unknown]
  - Dysuria [Unknown]
  - Menopausal symptoms [Unknown]
